FAERS Safety Report 23914287 (Version 2)
Quarter: 2024Q3

REPORT INFORMATION
  Report Type: Spontaneous
  Country: MA (occurrence: MA)
  Receive Date: 20240529
  Receipt Date: 20240709
  Transmission Date: 20241016
  Serious: Yes (Other)
  Sender: PFIZER
  Company Number: MA-PFIZER INC-PV202400067768

PATIENT
  Age: 24 Year
  Sex: Female

DRUGS (1)
  1. METHYLPREDNISOLONE [Suspect]
     Active Substance: METHYLPREDNISOLONE
     Indication: Crohn^s disease
     Dosage: UNK
     Route: 048

REACTIONS (3)
  - Hallucination, auditory [Unknown]
  - Obsessive-compulsive disorder [Unknown]
  - Off label use [Unknown]
